FAERS Safety Report 21997936 (Version 1)
Quarter: 2023Q1

REPORT INFORMATION
  Report Type: Report from Study
  Country: PL (occurrence: PL)
  Receive Date: 20230216
  Receipt Date: 20230216
  Transmission Date: 20230417
  Serious: No
  Sender: FDA-Public Use
  Company Number: PL-BRISTOL-MYERS SQUIBB COMPANY-2023-019367

PATIENT
  Sex: Female

DRUGS (1)
  1. VINES [Concomitant]
     Indication: Contraception
     Dosage: 1 (TABLET DOSING UNIT)
     Route: 048
     Dates: start: 20180402

REACTIONS (1)
  - Basal cell carcinoma [Recovered/Resolved]

NARRATIVE: CASE EVENT DATE: 20210110
